FAERS Safety Report 15569533 (Version 1)
Quarter: 2018Q4

REPORT INFORMATION
  Report Type: Report from Study
  Country: CN (occurrence: CN)
  Receive Date: 20181031
  Receipt Date: 20181031
  Transmission Date: 20190205
  Serious: No
  Sender: FDA-Public Use
  Company Number: CN-ROCHE-1954841

PATIENT
  Sex: Male
  Weight: 51 kg

DRUGS (1)
  1. AVASTIN [Suspect]
     Active Substance: BEVACIZUMAB
     Indication: RECTAL CANCER
     Route: 041
     Dates: start: 20170314, end: 20180111

REACTIONS (4)
  - Impaired healing [Unknown]
  - Abdominal injury [Unknown]
  - Weight decreased [Unknown]
  - Asthenia [Unknown]
